FAERS Safety Report 9309099 (Version 2)
Quarter: 2013Q4

REPORT INFORMATION
  Report Type: Spontaneous
  Country: US (occurrence: US)
  Receive Date: 20130525
  Receipt Date: 20131126
  Transmission Date: 20140711
  Serious: No
  Sender: FDA-Public Use
  Company Number: US-BRISTOL-MYERS SQUIBB COMPANY-18696401

PATIENT
  Sex: Female

DRUGS (2)
  1. BYDUREON [Suspect]
     Route: 058
     Dates: start: 20130225
  2. ASPIRIN [Concomitant]

REACTIONS (4)
  - Injection site haemorrhage [Recovered/Resolved]
  - Injection site mass [Not Recovered/Not Resolved]
  - Injection site abscess [Unknown]
  - Injection site pain [Unknown]
